FAERS Safety Report 10413407 (Version 2)
Quarter: 2015Q1

REPORT INFORMATION
  Report Type: Spontaneous
  Country: JP (occurrence: JP)
  Receive Date: 20140827
  Receipt Date: 20150113
  Transmission Date: 20150720
  Serious: Yes (Other)
  Sender: FDA-Public Use
  Company Number: JP-GLAXOSMITHKLINE-B0980068A

PATIENT

DRUGS (4)
  1. PAZOPANIB [Suspect]
     Active Substance: PAZOPANIB
     Dosage: UNK
     Route: 048
     Dates: start: 20140320
  2. LOPEMIN [Concomitant]
     Active Substance: LOPERAMIDE HYDROCHLORIDE
     Indication: DIARRHOEA
     Dosage: UNK
  3. PAZOPANIB [Suspect]
     Active Substance: PAZOPANIB
     Indication: SOFT TISSUE SARCOMA
     Dosage: UNK
     Route: 048
  4. AMLODIPINE [Concomitant]
     Active Substance: AMLODIPINE BESYLATE
     Indication: HYPERTENSION
     Dosage: UNK

REACTIONS (8)
  - Diarrhoea [Unknown]
  - Rash [Recovering/Resolving]
  - Erysipelas [Recovering/Resolving]
  - Thyroid function test abnormal [Recovering/Resolving]
  - Hypothyroidism [Unknown]
  - Hypertension [Recovered/Resolved]
  - Pain [Unknown]
  - Pyrexia [Recovering/Resolving]
